FAERS Safety Report 7861092-0 (Version None)
Quarter: 2011Q4

REPORT INFORMATION
  Report Type: 
  Country: None (occurrence: None)
  Receive Date: 20111027
  Receipt Date: 20111020
  Transmission Date: 20120403
  Serious: Yes (Death)
  Sender: FDA-Public Use
  Company Number: GB-ROCHE-GNE320964

PATIENT
  Sex: Male

DRUGS (4)
  1. FUROSEMIDE [Concomitant]
  2. LUCENTIS [Suspect]
     Indication: PRODUCT USED FOR UNKNOWN INDICATION
     Route: 050
     Dates: start: 20081016
  3. RAMIPRIL [Concomitant]
  4. OMEPRAZOLE [Concomitant]

REACTIONS (1)
  - DEATH [None]
